FAERS Safety Report 17386686 (Version 2)
Quarter: 2020Q1

REPORT INFORMATION
  Report Type: Spontaneous
  Country: US (occurrence: US)
  Receive Date: 20200206
  Receipt Date: 20200211
  Transmission Date: 20200409
  Serious: No
  Sender: FDA-Public Use
  Company Number: US-TAKEDA-2020TUS006221

PATIENT
  Age: 31 Year
  Sex: Female

DRUGS (1)
  1. TRINTELLIX [Suspect]
     Active Substance: VORTIOXETINE HYDROBROMIDE
     Indication: MAJOR DEPRESSION
     Dosage: 5 MILLIGRAM, QD
     Route: 048
     Dates: start: 20190115

REACTIONS (8)
  - Aphasia [Unknown]
  - Fibromyalgia [Unknown]
  - Nausea [Unknown]
  - Inappropriate schedule of product administration [Unknown]
  - Memory impairment [Unknown]
  - Feeling abnormal [Unknown]
  - Mental impairment [Unknown]
  - Somnolence [Unknown]

NARRATIVE: CASE EVENT DATE: 20190115
